FAERS Safety Report 7831002-0 (Version None)
Quarter: 2011Q4

REPORT INFORMATION
  Report Type: 
  Country: None (occurrence: None)
  Receive Date: 20111021
  Receipt Date: 20111018
  Transmission Date: 20120403
  Serious: Yes (Death, Hospitalization)
  Sender: FDA-Public Use
  Company Number: VE-PFIZER INC-2011235629

PATIENT
  Age: 83 Year
  Sex: Male

DRUGS (5)
  1. LIPITOR [Suspect]
     Indication: HYPERCHOLESTEROLAEMIA
     Dosage: 80 MG, 1X/DAY
     Route: 048
     Dates: start: 20090101, end: 20100806
  2. NORVASC [Concomitant]
     Dosage: UNK
  3. GLUCOFAGE [Concomitant]
     Indication: DIABETES MELLITUS
     Dosage: UNK
     Route: 048
     Dates: start: 20090101, end: 20100806
  4. LIPITOR [Suspect]
     Indication: CARDIAC DISORDER
  5. ATORVASTATIN [Concomitant]
     Dosage: UNK
     Route: 048
     Dates: start: 20090101, end: 20100806

REACTIONS (3)
  - CATHETERISATION CARDIAC [None]
  - VASCULAR GRAFT [None]
  - INFARCTION [None]
